FAERS Safety Report 9098836 (Version 2)
Quarter: 2013Q2

REPORT INFORMATION
  Report Type: Spontaneous
  Country: US (occurrence: US)
  Receive Date: 20130213
  Receipt Date: 20130419
  Transmission Date: 20140414
  Serious: Yes (Other)
  Sender: FDA-Public Use
  Company Number: US-CELGENEUS-163-21880-13020929

PATIENT
  Age: 62 Year
  Sex: Male

DRUGS (5)
  1. REVLIMID [Suspect]
     Indication: PLASMA CELL MYELOMA
     Dosage: 10 MILLIGRAM
     Route: 048
     Dates: start: 20110328
  2. REVLIMID [Suspect]
     Dosage: 10 MILLIGRAM
     Route: 048
     Dates: start: 201112
  3. ARANESP [Concomitant]
     Indication: ANAEMIA
     Dosage: 200 MICROGRAM
     Route: 065
     Dates: start: 2010
  4. ARANESP [Concomitant]
     Dosage: 200 MICROGRAM
     Route: 065
     Dates: start: 20110503
  5. VELCADE [Concomitant]
     Indication: PLASMA CELL MYELOMA
     Route: 065
     Dates: start: 201011, end: 201105

REACTIONS (1)
  - Foot fracture [Recovered/Resolved]
